FAERS Safety Report 5083350-8 (Version None)
Quarter: 2006Q3

REPORT INFORMATION
  Report Type: 
  Country: None (occurrence: None)
  Receive Date: 20060720
  Receipt Date: 20060516
  Transmission Date: 20061208
  Serious: Yes (Hospitalization)
  Sender: FDA-Public Use
  Company Number: 2006065371

PATIENT
  Age: 72 Year
  Sex: Male
  Weight: 83.9154 kg

DRUGS (1)
  1. CELEBREX [Suspect]
     Indication: ARTHRITIS
     Dosage: 200 MG (200 MG, 1 IN 1 D),
     Dates: end: 20010901

REACTIONS (3)
  - CORONARY ARTERY DISEASE [None]
  - EXOSTOSIS [None]
  - GASTROOESOPHAGEAL REFLUX DISEASE [None]
